FAERS Safety Report 7622311-9 (Version None)
Quarter: 2011Q3

REPORT INFORMATION
  Report Type: 
  Country: None (occurrence: None)
  Receive Date: 20110711
  Receipt Date: 20110623
  Transmission Date: 20111222
  Serious: Yes (Other)
  Sender: FDA-Public Use
  Company Number: THQ2011A03417

PATIENT
  Age: 59 Year
  Sex: Male

DRUGS (3)
  1. AMARYL [Concomitant]
  2. ACTOS [Suspect]
     Indication: DIABETES MELLITUS
     Dosage: 15 MG (1 D) PER ORAL
     Route: 048
  3. METFORMIN HCL [Concomitant]

REACTIONS (2)
  - PROSTATIC OPERATION [None]
  - BLADDER CANCER [None]
